FAERS Safety Report 12679293 (Version 1)
Quarter: 2016Q3

REPORT INFORMATION
  Report Type: Spontaneous
  Country: US (occurrence: None)
  Receive Date: 20160823
  Receipt Date: 20160823
  Transmission Date: 20161109
  Serious: Yes (Other)
  Sender: FDA-Public Use
  Company Number: None

PATIENT
  Age: 26 Year
  Sex: Male
  Weight: 117.94 kg

DRUGS (10)
  1. PROPRANOLOL [Concomitant]
     Active Substance: PROPRANOLOL\PROPRANOLOL HYDROCHLORIDE
  2. ADDERALL [Concomitant]
     Active Substance: AMPHETAMINE ASPARTATE\AMPHETAMINE SULFATE\DEXTROAMPHETAMINE SACCHARATE\DEXTROAMPHETAMINE SULFATE
  3. TEMAZEPAM. [Concomitant]
     Active Substance: TEMAZEPAM
  4. BUPROPION XR [Concomitant]
     Active Substance: BUPROPION
  5. VENLAFAXINE ER [Suspect]
     Active Substance: VENLAFAXINE HYDROCHLORIDE
     Indication: PSYCHOTHERAPY
     Dosage: 30 CAPSULE (S) IN THE MORNING TAKEN BY MOUTH
     Route: 048
     Dates: start: 20160810, end: 20160822
  6. PRAZOSIN [Concomitant]
     Active Substance: PRAZOSIN
  7. TESTOSTERONE CYPIONATE. [Concomitant]
     Active Substance: TESTOSTERONE CYPIONATE
  8. FISH OIL [Concomitant]
     Active Substance: FISH OIL
  9. VENLAFAXINE ER [Concomitant]
     Active Substance: VENLAFAXINE HYDROCHLORIDE
  10. ZINC [Concomitant]
     Active Substance: ZINC\ZINC CHLORIDE

REACTIONS (14)
  - Agitation [None]
  - Poor personal hygiene [None]
  - Catatonia [None]
  - Anhedonia [None]
  - Depression [None]
  - Crying [None]
  - Irritability [None]
  - Aphasia [None]
  - Emotional disorder [None]
  - Confusional state [None]
  - Somnolence [None]
  - Impaired driving ability [None]
  - Decreased activity [None]
  - Posture abnormal [None]

NARRATIVE: CASE EVENT DATE: 20160822
